FAERS Safety Report 10560997 (Version 4)
Quarter: 2015Q1

REPORT INFORMATION
  Report Type: Spontaneous
  Country: AU (occurrence: AU)
  Receive Date: 20141103
  Receipt Date: 20150108
  Transmission Date: 20150720
  Serious: Yes (Other)
  Sender: FDA-Public Use
  Company Number: AU-PFIZER INC-2014290837

PATIENT
  Sex: Male

DRUGS (4)
  1. CAVERJECT [Suspect]
     Active Substance: ALPROSTADIL
     Dosage: 20 ?G, UNK
  2. CAVERJECT [Suspect]
     Active Substance: ALPROSTADIL
     Dosage: 15 UG, UNK
  3. CAVERJECT [Suspect]
     Active Substance: ALPROSTADIL
     Dosage: 5 UG, UNK
  4. CAVERJECT [Suspect]
     Active Substance: ALPROSTADIL
     Dosage: 10 UG, UNK

REACTIONS (6)
  - Erection increased [Unknown]
  - Drug ineffective [Unknown]
  - Circumstance or information capable of leading to medication error [Unknown]
  - Penis disorder [Unknown]
  - Product quality issue [Unknown]
  - Injection site haemorrhage [Unknown]
